FAERS Safety Report 11748511 (Version 2)
Quarter: 2015Q4

REPORT INFORMATION
  Report Type: Spontaneous
  Country: KR (occurrence: KR)
  Receive Date: 20151117
  Receipt Date: 20151201
  Transmission Date: 20160304
  Serious: Yes (Other)
  Sender: FDA-Public Use
  Company Number: KR-NAPPMUNDI-GBR-2015-0032141

PATIENT
  Age: 60 Year
  Sex: Male

DRUGS (1)
  1. IRCODON IR TABLETS 5MG [Suspect]
     Active Substance: OXYCODONE HYDROCHLORIDE
     Indication: PRODUCT USED FOR UNKNOWN INDICATION
     Dosage: UNK
     Route: 048
     Dates: start: 20151106

REACTIONS (1)
  - Tongue paralysis [Recovered/Resolved]

NARRATIVE: CASE EVENT DATE: 20151106
